FAERS Safety Report 7325881-3 (Version None)
Quarter: 2011Q1

REPORT INFORMATION
  Report Type: 
  Country: None (occurrence: None)
  Receive Date: 20110218
  Receipt Date: 20110201
  Transmission Date: 20110831
  Serious: Yes (Other)
  Sender: FDA-Public Use
  Company Number: 2011SP004881

PATIENT
  Age: 34 Year
  Sex: Male

DRUGS (3)
  1. REMERON [Suspect]
     Dosage: 30 MG; PO
     Route: 048
  2. CLONAZEPAM [Concomitant]
  3. REMERON [Suspect]
     Dosage: 15 MG; PO, 45 MG; PO
     Route: 048

REACTIONS (8)
  - SOMNOLENCE [None]
  - PERSONALITY CHANGE [None]
  - LOGORRHOEA [None]
  - HYPERPHAGIA [None]
  - AFFECT LABILITY [None]
  - ASTHENIA [None]
  - WEIGHT INCREASED [None]
  - OBSESSIVE-COMPULSIVE PERSONALITY DISORDER [None]
